FAERS Safety Report 18085646 (Version 1)
Quarter: 2020Q3

REPORT INFORMATION
  Report Type: Report from Study
  Country: CA (occurrence: CA)
  Receive Date: 20200728
  Receipt Date: 20200728
  Transmission Date: 20201103
  Serious: Yes (Hospitalization)
  Sender: FDA-Public Use
  Company Number: NVSC2020CA113816

PATIENT
  Age: 50 Year
  Sex: Female

DRUGS (1)
  1. XIIDRA [Suspect]
     Active Substance: LIFITEGRAST
     Indication: DRY EYE
     Dosage: 1 DRP, BID (ONE DROP OF XIIDRA USED TWICE DAILY IN EACH EYE)
     Route: 065

REACTIONS (3)
  - Product use issue [Unknown]
  - Feeling abnormal [Unknown]
  - Product dose omission issue [Unknown]
